FAERS Safety Report 4667217-2 (Version None)
Quarter: 2005Q2

REPORT INFORMATION
  Report Type: 
  Country: None (occurrence: None)
  Receive Date: 20050520
  Receipt Date: 20041019
  Transmission Date: 20051028
  Serious: Yes (Disabling)
  Sender: FDA-Public Use
  Company Number: US-BRISTOL-MYERS SQUIBB COMPANY-12739348

PATIENT
  Age: 77 Year
  Sex: Male
  Weight: 89 kg

DRUGS (13)
  1. SINEMET [Suspect]
     Indication: PARKINSON'S DISEASE
     Dosage: 1 DOSAGE FORM = 50/200 MG TABLET
     Route: 048
  2. AMBIEN [Concomitant]
  3. AVAPRO [Concomitant]
  4. CLONAZEPAM [Concomitant]
  5. HYDROCHLOROTHIAZIDE [Concomitant]
  6. LIPITOR [Concomitant]
  7. MIRAPEX [Concomitant]
  8. NEXIUM [Concomitant]
  9. PAXIL [Concomitant]
  10. TOPROL-XL [Concomitant]
  11. WARFARIN [Concomitant]
  12. CHONDROITIN SULFATE + GLUCOSAMINE [Concomitant]
  13. VITAMIN E [Concomitant]

REACTIONS (1)
  - NAUSEA [None]
